FAERS Safety Report 5824057-6 (Version None)
Quarter: 2008Q3

REPORT INFORMATION
  Report Type: 
  Country: None (occurrence: None)
  Receive Date: 20080722
  Receipt Date: 20080708
  Transmission Date: 20090109
  Serious: Yes (Other)
  Sender: FDA-Public Use
  Company Number: MYVW-PR-0806S-0070

PATIENT
  Age: 52 Year
  Sex: Female

DRUGS (3)
  1. MYOVIEW [Suspect]
     Indication: DRUG USE FOR UNKNOWN INDICATION
     Dosage: SINGLE DOSE, I.V.
     Route: 042
     Dates: start: 20071017, end: 20071017
  2. THALLOUS CHLORIDE TL 201 [Concomitant]
  3. TECHNETIUM (TC99M) GENERATOR (MALLINCKRODT) (SODIUM PERTECHNETATE TC99 [Concomitant]

REACTIONS (2)
  - HEPATITIS B [None]
  - THERAPEUTIC PRODUCT CONTAMINATION [None]
